FAERS Safety Report 13158869 (Version 15)
Quarter: 2018Q2

REPORT INFORMATION
  Report Type: Report from Study
  Country: US (occurrence: US)
  Receive Date: 20170127
  Receipt Date: 20180508
  Transmission Date: 20180711
  Serious: Yes (Hospitalization, Other)
  Sender: FDA-Public Use
  Company Number: US-JNJFOC-20161223909

PATIENT
  Age: 84 Year
  Sex: Female

DRUGS (18)
  1. ULTRAM [Concomitant]
     Active Substance: TRAMADOL HYDROCHLORIDE
  2. ASPIRIN. [Concomitant]
     Active Substance: ASPIRIN
  3. DIGOXIN. [Concomitant]
     Active Substance: DIGOXIN
  4. ZOFRAN [Concomitant]
     Active Substance: ONDANSETRON HYDROCHLORIDE
  5. IMBRUVICA [Suspect]
     Active Substance: IBRUTINIB
     Indication: MANTLE CELL LYMPHOMA
     Route: 048
     Dates: start: 20161111
  6. IMBRUVICA [Suspect]
     Active Substance: IBRUTINIB
     Indication: MANTLE CELL LYMPHOMA
     Route: 048
     Dates: start: 20170209
  7. MULTIVITAMINS [Concomitant]
     Active Substance: VITAMINS
  8. ZYRTEC [Concomitant]
     Active Substance: CETIRIZINE HYDROCHLORIDE
  9. CULTURELLE [Concomitant]
     Active Substance: LACTOBACILLUS RHAMNOSUS
  10. COLACE [Concomitant]
     Active Substance: DOCUSATE SODIUM
  11. PREDNISONE. [Suspect]
     Active Substance: PREDNISONE
     Indication: BRONCHIECTASIS
     Dosage: UNK
     Route: 065
     Dates: end: 2017
  12. FLONASE [Concomitant]
     Active Substance: FLUTICASONE PROPIONATE
  13. IMBRUVICA [Suspect]
     Active Substance: IBRUTINIB
     Indication: MANTLE CELL LYMPHOMA
     Route: 048
     Dates: start: 20161102, end: 20161213
  14. IPRATROPIUM BROMIDE AND ALBUTEROL SULFATE [Concomitant]
     Active Substance: ALBUTEROL SULFATE\IPRATROPIUM BROMIDE
  15. MUCINEX [Concomitant]
     Active Substance: GUAIFENESIN
  16. COREG [Concomitant]
     Active Substance: CARVEDILOL
  17. LASIX [Concomitant]
     Active Substance: FUROSEMIDE
  18. IMBRUVICA [Suspect]
     Active Substance: IBRUTINIB
     Indication: MANTLE CELL LYMPHOMA
     Route: 048
     Dates: start: 20161114, end: 20170117

REACTIONS (22)
  - Asthenia [Recovered/Resolved]
  - Gastric ulcer [Unknown]
  - Tinnitus [Not Recovered/Not Resolved]
  - Haematochezia [Unknown]
  - Muscle spasms [Recovering/Resolving]
  - Pyrexia [Unknown]
  - Constipation [Recovering/Resolving]
  - Abdominal pain [Recovered/Resolved]
  - Dehydration [Recovered/Resolved]
  - Haemoptysis [Recovering/Resolving]
  - Pleural effusion [Recovered/Resolved]
  - Infective exacerbation of bronchiectasis [Recovering/Resolving]
  - Flatulence [Not Recovered/Not Resolved]
  - Abdominal discomfort [Recovering/Resolving]
  - Gastroenteritis viral [Recovered/Resolved]
  - Pneumonia [Recovered/Resolved]
  - Loss of consciousness [Unknown]
  - Gait disturbance [Recovered/Resolved]
  - Pain [Unknown]
  - Abdominal pain upper [Not Recovered/Not Resolved]
  - Confusional state [Recovered/Resolved]
  - Gastrointestinal haemorrhage [Unknown]

NARRATIVE: CASE EVENT DATE: 20161116
